FAERS Safety Report 19441157 (Version 1)
Quarter: 2021Q2

REPORT INFORMATION
  Report Type: Spontaneous
  Country: US (occurrence: US)
  Receive Date: 20210621
  Receipt Date: 20210621
  Transmission Date: 20210717
  Serious: No
  Sender: FDA-Public Use
  Company Number: US-TEVA-2021-US-1922049

PATIENT
  Age: 69 Year
  Sex: Female
  Weight: 59.42 kg

DRUGS (3)
  1. PFIZER?BIONTECH COVID?19 VACCINE [Suspect]
     Active Substance: TOZINAMERAN
     Dates: end: 20210316
  2. PRAVASTATIN. [Suspect]
     Active Substance: PRAVASTATIN
     Indication: BLOOD CHOLESTEROL INCREASED
     Route: 065
     Dates: end: 202105
  3. PFIZER?BIONTECH COVID?19 VACCINE [Suspect]
     Active Substance: TOZINAMERAN
     Dates: start: 20210223

REACTIONS (5)
  - Tinnitus [Unknown]
  - Groin pain [Unknown]
  - Limb discomfort [Unknown]
  - Myalgia [Unknown]
  - Insomnia [Unknown]

NARRATIVE: CASE EVENT DATE: 2021
